FAERS Safety Report 9950847 (Version 1)
Quarter: 2014Q1

REPORT INFORMATION
  Report Type: Report from Study
  Country: US (occurrence: US)
  Receive Date: 20140304
  Receipt Date: 20140304
  Transmission Date: 20141002
  Serious: No
  Sender: FDA-Public Use
  Company Number: US-ABBVIE-13P-163-1066465-00

PATIENT
  Age: 59 Year
  Sex: Female
  Weight: 86.26 kg

DRUGS (8)
  1. HUMIRA [Suspect]
     Indication: RHEUMATOID ARTHRITIS
     Dates: start: 2011, end: 2012
  2. HUMIRA [Suspect]
     Indication: UVEITIS
     Dates: start: 2012
  3. PREMILE [Concomitant]
     Indication: PRODUCT USED FOR UNKNOWN INDICATION
     Route: 047
  4. COMBIGAN [Concomitant]
     Indication: PRODUCT USED FOR UNKNOWN INDICATION
  5. AZOPT [Concomitant]
     Indication: PRODUCT USED FOR UNKNOWN INDICATION
     Route: 047
  6. TRAVATAN Z [Concomitant]
     Indication: PRODUCT USED FOR UNKNOWN INDICATION
  7. REFRESH [Concomitant]
     Indication: PRODUCT USED FOR UNKNOWN INDICATION
     Route: 047
  8. DEPREVE [Concomitant]
     Indication: PRODUCT USED FOR UNKNOWN INDICATION
     Route: 047

REACTIONS (8)
  - Uveitis [Recovered/Resolved]
  - Vitamin D decreased [Recovered/Resolved]
  - Uveitis [Not Recovered/Not Resolved]
  - Eye pain [Not Recovered/Not Resolved]
  - Ocular hyperaemia [Not Recovered/Not Resolved]
  - Photophobia [Not Recovered/Not Resolved]
  - Eye irritation [Not Recovered/Not Resolved]
  - Headache [Not Recovered/Not Resolved]
